FAERS Safety Report 10203873 (Version 1)
Quarter: 2014Q2

REPORT INFORMATION
  Report Type: Spontaneous
  Country: GB (occurrence: None)
  Receive Date: 20140523
  Receipt Date: 20140523
  Transmission Date: 20141212
  Serious: Yes (Hospitalization)
  Sender: FDA-Public Use
  Company Number: 2014P1004441

PATIENT
  Age: 52 Year
  Sex: Female

DRUGS (6)
  1. HYDROXYCHLOROQUINE [Suspect]
     Indication: RHEUMATOID ARTHRITIS
     Route: 048
     Dates: start: 201207, end: 20131215
  2. CO-CODAMOL [Concomitant]
  3. FLUOXETINE [Concomitant]
  4. PREDNISOLONE [Concomitant]
  5. AMITRIPTYLINE [Concomitant]
  6. LEFLUNOMIDE [Concomitant]

REACTIONS (5)
  - Tachycardia [None]
  - Dyspnoea [None]
  - Bundle branch block left [None]
  - Loss of consciousness [None]
  - Unevaluable event [None]
